FAERS Safety Report 7027619-6 (Version None)
Quarter: 2010Q4

REPORT INFORMATION
  Report Type: 
  Country: None (occurrence: None)
  Receive Date: 20101004
  Receipt Date: 20100921
  Transmission Date: 20110411
  Serious: Yes (Death)
  Sender: FDA-Public Use
  Company Number: KP-WATSON-2010-12946

PATIENT
  Age: 68 Year
  Sex: Male

DRUGS (2)
  1. ETOPOSIDE (WATSON LABORATORIES) [Suspect]
     Indication: SMALL CELL LUNG CANCER STAGE UNSPECIFIED
     Dosage: UNK
     Route: 042
  2. CISPLATIN [Suspect]
     Indication: SMALL CELL LUNG CANCER STAGE UNSPECIFIED
     Dosage: UNK

REACTIONS (1)
  - AORTIC THROMBOSIS [None]
